FAERS Safety Report 23963753 (Version 1)
Quarter: 2024Q2

REPORT INFORMATION
  Report Type: Spontaneous
  Country: US (occurrence: US)
  Receive Date: 20240611
  Receipt Date: 20240611
  Transmission Date: 20240716
  Serious: No
  Sender: FDA-Public Use
  Company Number: US-RIGEL PHARMACEUTICALS, INC.- 2023FOS000437

PATIENT
  Sex: Female

DRUGS (2)
  1. TAVALISSE [Suspect]
     Active Substance: FOSTAMATINIB
     Indication: Hereditary haemolytic anaemia
     Dosage: 150 MILLIGRAM, QD
     Route: 048
  2. TAVALISSE [Suspect]
     Active Substance: FOSTAMATINIB
     Dosage: 150 MILLIGRAM, BID
     Route: 048
     Dates: start: 20210623

REACTIONS (7)
  - Renal disorder [Not Recovered/Not Resolved]
  - Renal impairment [Unknown]
  - Renal function test abnormal [Unknown]
  - COVID-19 [Unknown]
  - Product prescribing issue [Unknown]
  - Off label use [Unknown]
  - Diarrhoea [Unknown]
